FAERS Safety Report 14798041 (Version 4)
Quarter: 2022Q4

REPORT INFORMATION
  Report Type: Other
  Country: DE (occurrence: DE)
  Receive Date: 20180424
  Receipt Date: 20221104
  Transmission Date: 20230113
  Serious: Yes (Death)
  Sender: FDA-Public Use
  Company Number: DE-ROCHE-2112597

PATIENT
  Age: 65 Year
  Sex: Female
  Weight: 80 kg

DRUGS (8)
  1. BEVACIZUMAB [Suspect]
     Active Substance: BEVACIZUMAB
     Indication: Breast cancer
     Route: 065
     Dates: start: 20120903
  2. BEVACIZUMAB [Suspect]
     Active Substance: BEVACIZUMAB
     Dosage: MOST RECENT DOSE PRIOR TO MULTIORGAN FAILURE
     Route: 065
     Dates: start: 20130626
  3. CAPECITABINE [Suspect]
     Active Substance: CAPECITABINE
     Indication: Breast cancer
     Dosage: MOST RECENT DOSE ON 29/MAY/2013
     Route: 065
     Dates: start: 20130306, end: 20130529
  4. PACLITAXEL [Concomitant]
     Active Substance: PACLITAXEL
     Indication: Breast cancer
     Dosage: MOST RECENT DOSE ON 17/DEC/2012
     Dates: start: 20120903
  5. BISOPROLOL [Concomitant]
     Active Substance: BISOPROLOL
     Dates: start: 20130102
  6. AMLODIPINE BESYLATE [Concomitant]
     Active Substance: AMLODIPINE BESYLATE
     Dates: start: 20130213, end: 20130319
  7. RAMIPRIL [Concomitant]
     Active Substance: RAMIPRIL
     Route: 048
     Dates: start: 20130319, end: 20140102
  8. TORSEMIDE [Concomitant]
     Active Substance: TORSEMIDE
     Route: 065
     Dates: start: 20130327

REACTIONS (2)
  - Multiple organ dysfunction syndrome [Fatal]
  - Hypertension [Recovering/Resolving]

NARRATIVE: CASE EVENT DATE: 20130213
